FAERS Safety Report 6525390-5 (Version None)
Quarter: 2010Q1

REPORT INFORMATION
  Report Type: 
  Country: None (occurrence: None)
  Receive Date: 20100104
  Receipt Date: 20091222
  Transmission Date: 20100710
  Serious: Yes (Other)
  Sender: FDA-Public Use
  Company Number: GR-JNJFOC-20091206879

PATIENT
  Age: 38 Year
  Sex: Female

DRUGS (1)
  1. INFLIXIMAB [Suspect]
     Indication: PSORIATIC ARTHROPATHY
     Dosage: TOTAL OF 8 INFUSIONS OVER 2 YEARS (DATES UNSPECIFIED)
     Route: 042

REACTIONS (2)
  - PERONEAL NERVE PALSY [None]
  - RADIAL NERVE PALSY [None]
